FAERS Safety Report 7805481-9 (Version None)
Quarter: 2011Q4

REPORT INFORMATION
  Report Type: 
  Country: None (occurrence: None)
  Receive Date: 20111010
  Receipt Date: 20110929
  Transmission Date: 20120403
  Serious: Yes (Death, Other)
  Sender: FDA-Public Use
  Company Number: PHHY2011DE86867

PATIENT
  Age: 16 Year
  Sex: Male

DRUGS (5)
  1. CISPLATIN [Suspect]
     Dosage: 70 MG/M2/DAY
  2. DOCETAXEL [Concomitant]
     Dosage: 75 MG/M2/DAY
  3. PAMIDRONATE DISODIUM [Suspect]
     Indication: LUNG CANCER METASTATIC
     Dosage: 30 MG, EVERY 4 WEEK
  4. DEXAMETHASONE [Concomitant]
     Dosage: UNK
  5. GEMCITABINE HYDROCHLORIDE [Suspect]
     Dosage: 1000 MG/M2/DAY

REACTIONS (14)
  - PLEURAL EFFUSION [None]
  - CHILLS [None]
  - METASTASES TO CENTRAL NERVOUS SYSTEM [None]
  - PLEURAL DISORDER [None]
  - VOMITING [None]
  - COUGH [None]
  - PANCYTOPENIA [None]
  - DIPLOPIA [None]
  - NEOPLASM MALIGNANT [None]
  - DIABETES INSIPIDUS [None]
  - NEOPLASM PROGRESSION [None]
  - CACHEXIA [None]
  - HEADACHE [None]
  - INFECTION [None]
